FAERS Safety Report 23860381 (Version 3)
Quarter: 2025Q1

REPORT INFORMATION
  Report Type: Spontaneous
  Country: IT (occurrence: IT)
  Receive Date: 20240515
  Receipt Date: 20250212
  Transmission Date: 20250408
  Serious: Yes (Other)
  Sender: PFIZER
  Company Number: None

PATIENT
  Age: 74 Year
  Sex: Male

DRUGS (6)
  1. BEVACIZUMAB [Suspect]
     Active Substance: BEVACIZUMAB
     Indication: Diabetic retinal oedema
     Route: 031
     Dates: start: 20230221, end: 20230221
  2. BEVACIZUMAB [Suspect]
     Active Substance: BEVACIZUMAB
     Route: 031
     Dates: start: 20230307, end: 20230307
  3. BEVACIZUMAB [Suspect]
     Active Substance: BEVACIZUMAB
     Dates: start: 20230328, end: 20230328
  4. BEVACIZUMAB [Suspect]
     Active Substance: BEVACIZUMAB
     Route: 031
     Dates: start: 20230412, end: 20230412
  5. BEVACIZUMAB [Suspect]
     Active Substance: BEVACIZUMAB
     Dates: start: 20230505, end: 20230505
  6. BEVACIZUMAB [Suspect]
     Active Substance: BEVACIZUMAB
     Route: 031
     Dates: start: 20230519, end: 20230519

REACTIONS (3)
  - Macular degeneration [Recovering/Resolving]
  - Drug ineffective for unapproved indication [Recovering/Resolving]
  - Off label use [Unknown]

NARRATIVE: CASE EVENT DATE: 20230221
